FAERS Safety Report 6615163-7 (Version None)
Quarter: 2010Q1

REPORT INFORMATION
  Report Type: 
  Country: None (occurrence: None)
  Receive Date: 20100305
  Receipt Date: 20100222
  Transmission Date: 20100710
  Serious: Yes (Other)
  Sender: FDA-Public Use
  Company Number: PHHY2010CA10531

PATIENT
  Sex: Female

DRUGS (2)
  1. ACLASTA [Suspect]
     Dosage: UNK
     Dates: start: 20090108
  2. ACLASTA [Suspect]
     Dosage: UNK
     Dates: start: 20100205

REACTIONS (2)
  - CARDIOMYOPATHY [None]
  - PALPITATIONS [None]
